FAERS Safety Report 19704370 (Version 1)
Quarter: 2021Q3

REPORT INFORMATION
  Report Type: Report from Study
  Country: IT (occurrence: IT)
  Receive Date: 20210816
  Receipt Date: 20210816
  Transmission Date: 20211014
  Serious: Yes (Other)
  Sender: FDA-Public Use
  Company Number: IT-CELLTRION INC.-2021IT010823

PATIENT

DRUGS (22)
  1. PERTUZUMAB. [Suspect]
     Active Substance: PERTUZUMAB
     Indication: HER2 POSITIVE BREAST CANCER
     Dosage: 420 MG EVERY 3 WEEK (MOST RECENT DOSE OF IV PERTUZUMAB: 28/NOV/2017)
     Route: 042
     Dates: start: 20170224
  2. CAPECITABINE. [Suspect]
     Active Substance: CAPECITABINE
     Indication: HER2 POSITIVE BREAST CANCER
     Dosage: 1500 MG EVERY 0.5 DAY, (MOST RECENT DOSE ON 08/JAN/2018)
     Route: 048
     Dates: start: 20171220
  3. LAPATINIB [Suspect]
     Active Substance: LAPATINIB
     Dosage: 250 MG EVERY 0.33 DAY (MOST RECENT DOSE OF LAPATINIB: 02/MAR/2018)
     Route: 048
     Dates: start: 20180223
  4. GIANT [Concomitant]
     Active Substance: AMLODIPINE BESYLATE\OLMESARTAN MEDOXOMIL
     Dosage: UNK
     Dates: start: 20171004
  5. DENOSUMAB [Concomitant]
     Active Substance: DENOSUMAB
     Dosage: UNK
     Dates: start: 20170823, end: 20180727
  6. CAPECITABINE. [Suspect]
     Active Substance: CAPECITABINE
     Dosage: 1500 MG (MOST RECENT DOSE OF CAPECITABINE: 19/JAN/2018)
     Route: 048
     Dates: start: 20180119
  7. LAPATINIB [Suspect]
     Active Substance: LAPATINIB
     Dosage: EVERY 0.25 DAY, MOST RECENT DOSE OF LAPATINIB: /MAR/2018
     Route: 048
     Dates: start: 20180303
  8. SERTRALINE [Concomitant]
     Active Substance: SERTRALINE HYDROCHLORIDE
  9. TRASTUZUMAB (UNKNOWN) [Suspect]
     Active Substance: TRASTUZUMAB
     Dosage: 6 MG/KG EVERY 3 WEEK (MOST RECENT DOSE OF IV TRASTUZUMAB: 28/NOV/2017)
     Route: 042
     Dates: start: 20170224
  10. MEDROL [Concomitant]
     Active Substance: METHYLPREDNISOLONE
     Dosage: UNK
     Dates: start: 20180720, end: 20180724
  11. PERTUZUMAB. [Suspect]
     Active Substance: PERTUZUMAB
     Indication: HER2 POSITIVE BREAST CANCER
     Dosage: 840 MG EVERY 3 WEEKS, MOST RECENT DOSE PRIOR TO THE EVENT: 31/JAN/2017
     Route: 042
     Dates: start: 20170131
  12. LAPATINIB [Suspect]
     Active Substance: LAPATINIB
     Dosage: 250 MG, EVERY 0.2 DAY (MOST RECENT DOSE PRIOR TO THE EVENT: 08/JAN/2018)
     Route: 048
     Dates: start: 20171219
  13. COLECALCIFEROL [Concomitant]
     Active Substance: CHOLECALCIFEROL
     Dosage: UNK
     Dates: start: 20170726
  14. MEDROL [Concomitant]
     Active Substance: METHYLPREDNISOLONE
     Dosage: UNK
     Dates: start: 20180725, end: 20180731
  15. TRASTUZUMAB (UNKNOWN) [Suspect]
     Active Substance: TRASTUZUMAB
     Indication: HER2 POSITIVE BREAST CANCER
     Dosage: 8 MG/KG EVERY 3 WEEK (MOST RECENT DOSE PRIOR TO THE EVENT: 31/JAN/2017)
     Route: 041
     Dates: start: 20170131
  16. LAPATINIB [Suspect]
     Active Substance: LAPATINIB
     Dosage: 250 MG EVERY 0.33 DAY (MOST RECENT DOSE OF LAPATINIB: 20/JUL/2018)
     Route: 048
     Dates: start: 20180330
  17. TRASTUZUMAB (UNKNOWN) [Suspect]
     Active Substance: TRASTUZUMAB
     Dosage: 600 MG EVERY 3 WEEK (MOST RECENT DOSE OF IV TRASTUZUMAB: 17/AUG/2018)
     Route: 042
     Dates: start: 20180727
  18. EXEMESTANE. [Suspect]
     Active Substance: EXEMESTANE
     Indication: HER2 POSITIVE BREAST CANCER
     Dosage: 25 MG, QD (DATE OF MOST RENCET DOSE: 19/DEC/2017)
     Route: 048
     Dates: start: 20170726
  19. LAPATINIB [Suspect]
     Active Substance: LAPATINIB
     Indication: HER2 POSITIVE BREAST CANCER
     Dosage: MOST RECENT DOSE OF LAPATINIB: /MAR/2018
     Route: 048
     Dates: start: 201803
  20. COLECALCIFEROL [Concomitant]
     Active Substance: CHOLECALCIFEROL
     Dosage: UNK
     Dates: start: 20170726
  21. XANAX [Concomitant]
     Active Substance: ALPRAZOLAM
  22. LAPATINIB [Suspect]
     Active Substance: LAPATINIB
     Dosage: 250 MG EVERY 0.5 DAY (MOST RECENT DOSE OF LAPATINIB: 22/FEB/2018)
     Route: 048
     Dates: start: 20180216

REACTIONS (6)
  - Malaise [Recovered/Resolved]
  - Diarrhoea [Recovered/Resolved]
  - Asthenia [Recovered/Resolved]
  - Overdose [Unknown]
  - Hypokalaemia [Recovered/Resolved]
  - Diarrhoea [Recovered/Resolved]

NARRATIVE: CASE EVENT DATE: 20170705
